FAERS Safety Report 8762719 (Version 2)
Quarter: 2013Q2

REPORT INFORMATION
  Report Type: Report from Study
  Country: BR (occurrence: BR)
  Receive Date: 20120831
  Receipt Date: 20130502
  Transmission Date: 20140414
  Serious: Yes (Hospitalization, Other)
  Sender: FDA-Public Use
  Company Number: BR-ROCHE-1108539

PATIENT
  Sex: Female

DRUGS (6)
  1. XOLAIR [Suspect]
     Indication: ASTHMA
     Route: 058
  2. SERETIDE [Concomitant]
     Route: 065
  3. PANTOPRAZOLE [Concomitant]
  4. STILNOX [Concomitant]
     Route: 065
  5. PRESSAT [Concomitant]
     Route: 065
  6. HYDROCHLOROTHIAZIDE [Concomitant]
     Route: 065

REACTIONS (8)
  - Uterine cancer [Recovered/Resolved]
  - Diabetes mellitus [Recovering/Resolving]
  - Dyspnoea [Recovered/Resolved]
  - Rhinitis allergic [Recovered/Resolved]
  - Influenza [Recovered/Resolved]
  - Dysphonia [Recovered/Resolved]
  - Increased bronchial secretion [Recovered/Resolved]
  - Increased upper airway secretion [Recovered/Resolved]
